FAERS Safety Report 7030337-1 (Version None)
Quarter: 2010Q4

REPORT INFORMATION
  Report Type: 
  Country: None (occurrence: None)
  Receive Date: 20101006
  Receipt Date: 20100929
  Transmission Date: 20110411
  Serious: Yes (Hospitalization)
  Sender: FDA-Public Use
  Company Number: GB-US-EMD SERONO, INC.-7017770

PATIENT
  Sex: Female
  Weight: 75 kg

DRUGS (1)
  1. REBIF [Suspect]
     Indication: RELAPSING-REMITTING MULTIPLE SCLEROSIS
     Dates: start: 20071119

REACTIONS (2)
  - FALL [None]
  - MALAISE [None]
